FAERS Safety Report 9999473 (Version 1)
Quarter: 2014Q1

REPORT INFORMATION
  Report Type: Spontaneous
  Country: US (occurrence: None)
  Receive Date: 20140311
  Receipt Date: 20140311
  Transmission Date: 20141002
  Serious: Yes (Other)
  Sender: FDA-Public Use
  Company Number: None

PATIENT
  Age: 32 Year
  Sex: Female
  Weight: 99.8 kg

DRUGS (1)
  1. MINOCYCLINE [Suspect]
     Route: 058
     Dates: start: 20130826, end: 20131007

REACTIONS (4)
  - Urticaria [None]
  - Pruritus [None]
  - Nausea [None]
  - Vomiting [None]
